FAERS Safety Report 19747327 (Version 1)
Quarter: 2021Q3

REPORT INFORMATION
  Report Type: Other
  Country: GB (occurrence: GB)
  Receive Date: 20210826
  Receipt Date: 20210826
  Transmission Date: 20211014
  Serious: Yes (Hospitalization)
  Sender: FDA-Public Use
  Company Number: GB-LUPIN PHARMACEUTICALS INC.-2021-15596

PATIENT
  Age: 62 Year
  Sex: Male
  Weight: 111.9 kg

DRUGS (7)
  1. ASPIRINE [Concomitant]
     Active Substance: ASPIRIN
     Indication: ILL-DEFINED DISORDER
     Dosage: UNK
     Route: 065
  2. METFORMINE [Concomitant]
     Active Substance: METFORMIN HYDROCHLORIDE
     Indication: ILL-DEFINED DISORDER
     Dosage: UNK
     Route: 065
  3. RAMIPRIL. [Concomitant]
     Active Substance: RAMIPRIL
     Indication: ILL-DEFINED DISORDER
     Dosage: UNK
     Route: 065
  4. SIMVASTATIN. [Suspect]
     Active Substance: SIMVASTATIN
     Indication: BLOOD CHOLESTEROL INCREASED
     Dosage: UNK
     Route: 048
     Dates: start: 201005, end: 202108
  5. PREGABALIN MYLAN [Concomitant]
     Active Substance: PREGABALIN
     Indication: ILL-DEFINED DISORDER
     Dosage: UNK
     Route: 065
  6. BISOPROLOL FUMARATE. [Concomitant]
     Active Substance: BISOPROLOL FUMARATE
     Indication: ILL-DEFINED DISORDER
     Dosage: UNK
     Route: 065
  7. SERTRALINE HYDROCHLORIDE. [Concomitant]
     Active Substance: SERTRALINE HYDROCHLORIDE
     Indication: ILL-DEFINED DISORDER
     Dosage: UNK
     Route: 065

REACTIONS (1)
  - Blood creatine increased [Not Recovered/Not Resolved]

NARRATIVE: CASE EVENT DATE: 20210802
